FAERS Safety Report 12626946 (Version 3)
Quarter: 2016Q4

REPORT INFORMATION
  Report Type: Spontaneous
  Country: US (occurrence: US)
  Receive Date: 20160805
  Receipt Date: 20161012
  Transmission Date: 20170207
  Serious: Yes (Hospitalization, Other)
  Sender: FDA-Public Use
  Company Number: US-SAOL THERAPEUTICS-2016SAO00330

PATIENT
  Age: 25 Year
  Sex: Male

DRUGS (19)
  1. DILAUDID [Concomitant]
     Active Substance: HYDROMORPHONE HYDROCHLORIDE
     Dosage: 4 MG, 3X/DAY
  2. COMPOUND CREAM [Concomitant]
     Active Substance: UNSPECIFIED INGREDIENT
  3. PAROXETINE. [Concomitant]
     Active Substance: PAROXETINE
     Dosage: 40 MG, 1X/DAY
     Route: 048
  4. XANAX [Concomitant]
     Active Substance: ALPRAZOLAM
     Dosage: 2 MG, 3X/DAY
  5. VOLTAREN [Concomitant]
     Active Substance: DICLOFENAC SODIUM
  6. AMLODIPINE [Concomitant]
     Active Substance: AMLODIPINE BESYLATE
     Dosage: 5 MG, 1X/DAY
     Route: 048
  7. ENOXAPARIN [Concomitant]
     Active Substance: ENOXAPARIN
     Dosage: 40 MG, 1X/DAY
     Route: 058
  8. MAGNESIUM OXIDE. [Concomitant]
     Active Substance: MAGNESIUM OXIDE
     Dosage: 400 MG, 1X/DAY
     Route: 048
  9. LIORESAL [Suspect]
     Active Substance: BACLOFEN
     Indication: SPINAL CORD INJURY
     Dosage: 1403.9 ?G \DAY
  10. ACETAMINOPHEN. [Concomitant]
     Active Substance: ACETAMINOPHEN
     Dosage: 2 TABLETS, AS NEEDED
  11. DIAZEPAM. [Concomitant]
     Active Substance: DIAZEPAM
     Dosage: 10 MG, AS NEEDED
     Route: 042
  12. PROPRANOLOL [Concomitant]
     Active Substance: PROPRANOLOL\PROPRANOLOL HYDROCHLORIDE
     Dosage: 160 MG, 1X/DAY
     Route: 048
  13. TRAZODONE [Concomitant]
     Active Substance: TRAZODONE HYDROCHLORIDE
     Dosage: 150 MG, 1X/DAY
     Route: 048
  14. BACLOFEN. [Concomitant]
     Active Substance: BACLOFEN
     Dosage: 30 MG, 3X/DAY
     Route: 048
  15. CHOLECALCIFEROL [Concomitant]
     Active Substance: CHOLECALCIFEROL
     Dosage: 5000 IU, 1X/DAY
     Route: 048
  16. OMEGA-3 POLYUNSATURATED FATTY ACIDS ETHYL ESTERS [Concomitant]
     Dosage: 1 G, 1X/DAY
     Route: 048
  17. PERCOCET [Concomitant]
     Active Substance: ACETAMINOPHEN\OXYCODONE HYDROCHLORIDE
  18. LIORESAL [Suspect]
     Active Substance: BACLOFEN
     Indication: MUSCLE SPASTICITY
     Dosage: 1210.6 ?G, \DAY
     Route: 037
     Dates: start: 20160730
  19. MORPHINE [Concomitant]
     Active Substance: MORPHINE
     Dosage: 4 MG, AS NEEDED
     Route: 042

REACTIONS (5)
  - Anxiety [Unknown]
  - Muscle spasms [Recovering/Resolving]
  - Sleep disorder [Unknown]
  - Clonus [Recovering/Resolving]
  - Pain [Unknown]

NARRATIVE: CASE EVENT DATE: 20160719
